FAERS Safety Report 12944282 (Version 2)
Quarter: 2016Q4

REPORT INFORMATION
  Report Type: Spontaneous
  Country: IT (occurrence: IT)
  Receive Date: 20161115
  Receipt Date: 20161227
  Transmission Date: 20170207
  Serious: Yes (Other)
  Sender: FDA-Public Use
  Company Number: PHHY2016IT155686

PATIENT
  Age: 96 Year
  Sex: Male
  Weight: 60 kg

DRUGS (2)
  1. AMOXICILLINA E ACIDO CLAVULANICO SANDOZ BV [Suspect]
     Active Substance: AMOXICILLIN\CLAVULANATE POTASSIUM
     Indication: PNEUMONITIS
     Dosage: 1200 MG, ONCE/SINGLE
     Route: 042
     Dates: start: 20161104, end: 20161104
  2. KLACID [Concomitant]
     Active Substance: CLARITHROMYCIN
     Indication: PRODUCT USED FOR UNKNOWN INDICATION
     Dosage: 1000 MG, UNK
     Route: 048
     Dates: start: 20161104, end: 20161104

REACTIONS (4)
  - Tremor [Recovered/Resolved]
  - Malaise [Recovered/Resolved]
  - Pyrexia [Recovered/Resolved]
  - Infusion site pain [Recovered/Resolved]

NARRATIVE: CASE EVENT DATE: 20161104
